FAERS Safety Report 5653862-4 (Version None)
Quarter: 2008Q1

REPORT INFORMATION
  Report Type: 
  Country: None (occurrence: None)
  Receive Date: 20080306
  Receipt Date: 20080303
  Transmission Date: 20080703
  Serious: Yes (Other)
  Sender: FDA-Public Use
  Company Number: JP-AVENTIS-200810564JP

PATIENT
  Age: 50 Year
  Sex: Male

DRUGS (4)
  1. LANTUS [Suspect]
     Route: 058
  2. OPTICLIK (INSULIN INJECTION PEN) [Suspect]
  3. TEGRETOL [Suspect]
  4. HUMALOG MIX                        /01293501/ [Concomitant]

REACTIONS (1)
  - ERYTHEMA MULTIFORME [None]
